FAERS Safety Report 24580210 (Version 1)
Quarter: 2024Q4

REPORT INFORMATION
  Report Type: Other
  Country: US (occurrence: US)
  Receive Date: 20241105
  Receipt Date: 20241105
  Transmission Date: 20250115
  Serious: Yes (Life-Threatening, Hospitalization, Other)
  Sender: COREPHARMA LLC
  Company Number: US-CorePharma LLC-2164497

PATIENT
  Age: 26 Year
  Sex: Male

DRUGS (2)
  1. AMLODIPINE BESYLATE [Suspect]
     Active Substance: AMLODIPINE BESYLATE
     Indication: Product used for unknown indication
  2. ARIPIPRAZOLE [Suspect]
     Active Substance: ARIPIPRAZOLE

REACTIONS (13)
  - Respiratory failure [Recovering/Resolving]
  - Overdose [Unknown]
  - Toxicity to various agents [Recovering/Resolving]
  - Mean arterial pressure decreased [Recovering/Resolving]
  - Metabolic acidosis [Recovering/Resolving]
  - Hypocalcaemia [Recovering/Resolving]
  - Hypotension [Recovered/Resolved]
  - Electrolyte imbalance [Recovering/Resolving]
  - Vasoplegia syndrome [Recovering/Resolving]
  - Sepsis [Recovered/Resolved]
  - Distributive shock [Recovering/Resolving]
  - Renal tubular necrosis [Recovering/Resolving]
  - Multiple organ dysfunction syndrome [Recovering/Resolving]
